FAERS Safety Report 8349879-1 (Version None)
Quarter: 2012Q2

REPORT INFORMATION
  Report Type: 
  Country: None (occurrence: None)
  Receive Date: 20120510
  Receipt Date: 20120504
  Transmission Date: 20120825
  Serious: Yes (Death, Hospitalization)
  Sender: FDA-Public Use
  Company Number: US-AMGEN-US350144

PATIENT
  Age: 79 Year
  Sex: Male
  Weight: 82.54 kg

DRUGS (2)
  1. NPLATE [Suspect]
     Dates: start: 20090507, end: 20090603
  2. NPLATE [Suspect]
     Indication: IDIOPATHIC THROMBOCYTOPENIC PURPURA
     Dosage: 4 MUG/KG, UNK
     Route: 058
     Dates: start: 20090507, end: 20090603

REACTIONS (2)
  - PNEUMONIA [None]
  - INTERSTITIAL LUNG DISEASE [None]
